FAERS Safety Report 4865376-X (Version None)
Quarter: 2005Q4

REPORT INFORMATION
  Report Type: 
  Country: None (occurrence: None)
  Receive Date: 20051216
  Receipt Date: 20051201
  Transmission Date: 20060501
  Serious: Yes (Death, Life-Threatening)
  Sender: FDA-Public Use
  Company Number: 2005-02410

PATIENT
  Age: 45 Year
  Sex: Female
  Weight: 46 kg

DRUGS (4)
  1. VELCADE [Suspect]
     Indication: MULTIPLE MYELOMA
     Dosage: 1.20 MGM2, 2/WEEK, INTRAVENOUS
     Route: 042
     Dates: start: 20051021, end: 20051121
  2. DEXAMETHASONE [Concomitant]
  3. BACTRIM [Concomitant]
  4. METRONIDAZOLE [Concomitant]

REACTIONS (4)
  - ACUTE MYOCARDIAL INFARCTION [None]
  - NAUSEA [None]
  - PERICARDITIS [None]
  - VOMITING [None]
